FAERS Safety Report 16200807 (Version 1)
Quarter: 2019Q2

REPORT INFORMATION
  Report Type: Spontaneous
  Country: US (occurrence: US)
  Receive Date: 20190416
  Receipt Date: 20190416
  Transmission Date: 20190711
  Serious: No
  Sender: FDA-Public Use
  Company Number: US-BION-007313

PATIENT
  Age: 92 Year
  Sex: Female
  Weight: 66 kg

DRUGS (8)
  1. ALEVE [Suspect]
     Active Substance: NAPROXEN SODIUM
     Indication: PAIN
     Dosage: 3 AT ONE DOSE
     Route: 048
     Dates: start: 20180709
  2. ERGOCALCIFEROL. [Concomitant]
     Active Substance: ERGOCALCIFEROL
  3. ATRA [Concomitant]
     Active Substance: TRETINOIN
  4. POTASSIUM [Concomitant]
     Active Substance: POTASSIUM
  5. ZOLOFT [Concomitant]
     Active Substance: SERTRALINE HYDROCHLORIDE
  6. BAYER LOW DOSE [Concomitant]
     Active Substance: ASPIRIN
     Dosage: STRENGTH: 81 MG
  7. METOPROLOL. [Concomitant]
     Active Substance: METOPROLOL
  8. OSTEO BI-FLEX [Concomitant]
     Active Substance: CHONDROITIN SULFATE A\GLUCOSAMINE

REACTIONS (1)
  - Accidental overdose [Not Recovered/Not Resolved]

NARRATIVE: CASE EVENT DATE: 20180709
